FAERS Safety Report 21780862 (Version 1)
Quarter: 2022Q4

REPORT INFORMATION
  Report Type: Report from Study
  Country: EG (occurrence: EG)
  Receive Date: 20221227
  Receipt Date: 20221227
  Transmission Date: 20230113
  Serious: Yes (Other)
  Sender: FDA-Public Use
  Company Number: EG-002147023-NVSC2022EG298542

PATIENT
  Sex: Female

DRUGS (7)
  1. GILENYA [Suspect]
     Active Substance: FINGOLIMOD HYDROCHLORIDE
     Indication: Multiple sclerosis
     Dosage: 1 DOSAGE FORM, QD
     Route: 048
     Dates: start: 202012, end: 202104
  2. GILENYA [Suspect]
     Active Substance: FINGOLIMOD HYDROCHLORIDE
     Dosage: 1 DOSAGE FORM, QOD
     Route: 048
     Dates: start: 202104, end: 202106
  3. GILENYA [Suspect]
     Active Substance: FINGOLIMOD HYDROCHLORIDE
     Dosage: 1 DOSAGE FORM, QD
     Route: 048
     Dates: start: 202106
  4. DEVAROL [Concomitant]
     Indication: Vitamin supplementation
     Dosage: UNK, QMO
     Route: 065
     Dates: start: 202104, end: 202106
  5. OSSOFORTIN [Concomitant]
     Indication: Supplementation therapy
     Dosage: UNK UNK, QD (10000)
     Route: 048
     Dates: start: 202012, end: 202102
  6. FOLIC ACID [Concomitant]
     Active Substance: FOLIC ACID
     Indication: Supplementation therapy
     Dosage: UNK, QD
     Route: 065
     Dates: start: 202104, end: 202105
  7. SOLUPRED [Concomitant]
     Indication: Multiple sclerosis
     Dosage: UNK, QD
     Route: 065
     Dates: start: 20221112, end: 20221119

REACTIONS (2)
  - Decreased immune responsiveness [Recovered/Resolved]
  - White blood cell count decreased [Recovered/Resolved]

NARRATIVE: CASE EVENT DATE: 20210101
